FAERS Safety Report 7728607-4 (Version None)
Quarter: 2011Q3

REPORT INFORMATION
  Report Type: 
  Country: None (occurrence: None)
  Receive Date: 20110831
  Receipt Date: 20110831
  Transmission Date: 20111222
  Serious: Yes (Hospitalization)
  Sender: FDA-Public Use
  Company Number: None

PATIENT
  Age: 3 Year
  Sex: Female
  Weight: 25 kg

DRUGS (1)
  1. SGN-35 (BRETUXIMAB VEDOTIN) INJECTION [Suspect]
     Indication: LYMPHOMA
     Dosage: 1.2 MG/KG IV WKLY X 3WK
     Route: 042
     Dates: start: 20110617, end: 20110624

REACTIONS (4)
  - CHILLS [None]
  - PERIPHERAL MOTOR NEUROPATHY [None]
  - PYREXIA [None]
  - TRANSAMINASES INCREASED [None]
